FAERS Safety Report 9801483 (Version 2)
Quarter: 2014Q1

REPORT INFORMATION
  Report Type: Spontaneous
  Country: US (occurrence: US)
  Receive Date: 20140107
  Receipt Date: 20140107
  Transmission Date: 20141002
  Serious: No
  Sender: FDA-Public Use
  Company Number: US-GILEAD-US-CVT-100296

PATIENT
  Age: 78 Year
  Sex: Male

DRUGS (16)
  1. RANEXA [Suspect]
     Indication: ANGINA PECTORIS
     Route: 048
     Dates: start: 20100415
  2. ZEMPLAR [Suspect]
  3. GLYCERYL TRINITRATE [Concomitant]
  4. METOPROLOL TARTRATE [Concomitant]
  5. GEMFIBROZIL [Concomitant]
  6. ACETYLSALICYLIC ACID [Concomitant]
  7. NIFEDIPINE [Concomitant]
  8. ISOSORBIDE MONONITRATE [Concomitant]
  9. CLOPIDOGREL                        /01220701/ [Concomitant]
  10. SPIRONOLACTONE [Concomitant]
  11. FUROSEMIDE                         /00032601/ [Concomitant]
  12. ALLOPURINOL [Concomitant]
  13. GABAPENTIN [Concomitant]
  14. PEPCIDDUAL [Concomitant]
  15. MACROGOL [Concomitant]
  16. DOCUSATE SODIUM [Concomitant]

REACTIONS (3)
  - Constipation [Unknown]
  - Dizziness [Unknown]
  - Headache [Unknown]
